FAERS Safety Report 17590170 (Version 1)
Quarter: 2020Q1

REPORT INFORMATION
  Report Type: Report from Study
  Country: None (occurrence: US)
  Receive Date: 20200327
  Receipt Date: 20200327
  Transmission Date: 20200409
  Serious: Yes (Other)
  Sender: FDA-Public Use
  Company Number: US-ABBVIE-20K-163-3297467-00

PATIENT
  Age: 47 Year
  Sex: Female

DRUGS (1)
  1. HUMIRA [Suspect]
     Active Substance: ADALIMUMAB
     Indication: ANKYLOSING SPONDYLITIS
     Route: 058
     Dates: start: 20191214

REACTIONS (14)
  - Discomfort [Unknown]
  - Arthralgia [Unknown]
  - Musculoskeletal stiffness [Unknown]
  - Joint range of motion decreased [Unknown]
  - Injection site urticaria [Unknown]
  - Precancerous cells present [Unknown]
  - Fatigue [Not Recovered/Not Resolved]
  - Neck pain [Unknown]
  - Myalgia [Unknown]
  - Discomfort [Unknown]
  - General physical condition abnormal [Recovering/Resolving]
  - Back pain [Unknown]
  - Tenderness [Unknown]
  - Loss of personal independence in daily activities [Unknown]

NARRATIVE: CASE EVENT DATE: 201912
